FAERS Safety Report 5169244-8 (Version None)
Quarter: 2006Q4

REPORT INFORMATION
  Report Type: 
  Country: None (occurrence: None)
  Receive Date: 20061201
  Receipt Date: 20061121
  Transmission Date: 20070319
  Serious: Yes (Hospitalization)
  Sender: FDA-Public Use
  Company Number: 2006133586

PATIENT
  Age: 50 Year
  Sex: Female

DRUGS (2)
  1. AROMASIN [Suspect]
     Indication: BREAST CANCER
     Dosage: 25 M G (25 MG, DAILY), ORAL
     Route: 048
     Dates: start: 20061020
  2. TAMOXIFEN CITRATE [Concomitant]

REACTIONS (1)
  - LYMPHANGIOSIS CARCINOMATOSA [None]
